FAERS Safety Report 18668867 (Version 2)
Quarter: 2020Q4

REPORT INFORMATION
  Report Type: Report from Study
  Country: AU (occurrence: AU)
  Receive Date: 20201228
  Receipt Date: 20201231
  Transmission Date: 20210114
  Serious: Yes (Death, Hospitalization)
  Sender: FDA-Public Use
  Company Number: AU-ROCHE-2656250

PATIENT
  Age: 61 Year
  Sex: Male
  Weight: 66.8 kg

DRUGS (109)
  1. SODIBIC [Concomitant]
     Indication: DEEP VEIN THROMBOSIS
     Route: 048
     Dates: start: 201709, end: 20200727
  2. DEXAMETHASONE. [Concomitant]
     Active Substance: DEXAMETHASONE
     Indication: PHOTOPHOBIA
     Route: 042
     Dates: start: 20200729, end: 20200729
  3. NORMAL SALINE [Concomitant]
     Active Substance: SODIUM CHLORIDE
     Route: 042
     Dates: start: 20200727, end: 20200727
  4. NORMAL SALINE [Concomitant]
     Active Substance: SODIUM CHLORIDE
     Route: 042
     Dates: start: 20200730, end: 20200730
  5. NORMAL SALINE [Concomitant]
     Active Substance: SODIUM CHLORIDE
     Route: 042
     Dates: start: 20200807, end: 20200807
  6. NORMAL SALINE [Concomitant]
     Active Substance: SODIUM CHLORIDE
     Route: 042
     Dates: start: 20200807, end: 20200807
  7. NORMAL SALINE [Concomitant]
     Active Substance: SODIUM CHLORIDE
     Route: 042
     Dates: start: 20200808, end: 20200808
  8. MAGNESIUM SULPHATE [Concomitant]
     Active Substance: MAGNESIUM SULFATE
     Route: 042
     Dates: start: 20200812, end: 20200812
  9. FRUSEMIDE [Concomitant]
     Active Substance: FUROSEMIDE
     Route: 042
     Dates: start: 20200731, end: 20200731
  10. LOPERAMIDE [Concomitant]
     Active Substance: LOPERAMIDE
     Indication: DIARRHOEA
     Route: 048
     Dates: start: 20200816
  11. TAZOCIN [Concomitant]
     Active Substance: PIPERACILLIN SODIUM\TAZOBACTAM SODIUM
     Route: 042
     Dates: start: 20200822, end: 20200829
  12. FRUSEMIDE [Concomitant]
     Active Substance: FUROSEMIDE
     Indication: FLUID OVERLOAD
     Route: 042
     Dates: start: 20200822, end: 20200825
  13. MEROPENEM. [Concomitant]
     Active Substance: MEROPENEM
     Route: 042
     Dates: start: 20200825, end: 20200826
  14. HALOPERIDOL. [Concomitant]
     Active Substance: HALOPERIDOL
     Indication: NAUSEA
     Route: 058
     Dates: start: 20200829
  15. OXYMETAZOLINE [Concomitant]
     Active Substance: OXYMETAZOLINE
     Dosage: 1 SPRAY
     Dates: start: 20200826, end: 20200829
  16. ALBUMINEX [Concomitant]
     Active Substance: ALBUMIN HUMAN-KJDA
     Route: 042
     Dates: start: 20200823, end: 20200823
  17. GLUCOSE [Concomitant]
     Active Substance: DEXTROSE
     Dosage: 1000 ML (MM, CM3)
     Route: 042
     Dates: start: 20200815, end: 20200815
  18. GLUCOSE [Concomitant]
     Active Substance: DEXTROSE
     Dosage: 1000 ML (MM, CM3)
     Route: 042
     Dates: start: 20200824, end: 20200824
  19. OXYGEN. [Concomitant]
     Active Substance: OXYGEN
     Indication: HYPOXIA
     Dosage: 1 OTHER
     Route: 045
     Dates: start: 20200729, end: 20200729
  20. CYCLOPHOSPHAMIDE. [Concomitant]
     Active Substance: CYCLOPHOSPHAMIDE
     Indication: NEOPLASM MALIGNANT
  21. APIXABAN [Concomitant]
     Active Substance: APIXABAN
     Route: 048
     Dates: start: 20200819, end: 20200829
  22. PHOSPHATE [Concomitant]
     Active Substance: UNSPECIFIED INGREDIENT
     Indication: BLOOD PHOSPHORUS DECREASED
     Route: 033
     Dates: start: 20200729, end: 20200729
  23. NORMAL SALINE [Concomitant]
     Active Substance: SODIUM CHLORIDE
     Route: 042
     Dates: start: 20200809, end: 20200809
  24. NORMAL SALINE [Concomitant]
     Active Substance: SODIUM CHLORIDE
     Route: 042
     Dates: start: 20200812, end: 20200812
  25. MAGNESIUM SULPHATE [Concomitant]
     Active Substance: MAGNESIUM SULFATE
     Route: 042
     Dates: start: 20200812, end: 20200812
  26. LORAZEPAM. [Concomitant]
     Active Substance: LORAZEPAM
     Indication: NAUSEA
  27. ONDANSETRON [Concomitant]
     Active Substance: ONDANSETRON
     Indication: VOMITING
  28. CLONAZEPAM. [Concomitant]
     Active Substance: CLONAZEPAM
     Indication: INSOMNIA
     Route: 048
     Dates: start: 20200826
  29. CEFTRIAXONE. [Concomitant]
     Active Substance: CEFTRIAXONE
     Route: 042
     Dates: start: 20200730, end: 20200730
  30. POTASSIUM CHLORIDE. [Concomitant]
     Active Substance: POTASSIUM CHLORIDE
     Route: 042
     Dates: start: 20200826, end: 20200826
  31. GLUCOSE [Concomitant]
     Active Substance: DEXTROSE
     Dosage: 1000 ML (MM, CM3)
     Route: 042
     Dates: start: 20200814, end: 20200814
  32. PACKED RED CELLS [Concomitant]
     Active Substance: HUMAN RED BLOOD CELL
     Route: 042
     Dates: start: 20200810, end: 20200810
  33. BFCR4350A (ANTI-FCRH5/CD3 BISPECIFIC ANTIBODY) [Suspect]
     Active Substance: CEVOSTAMAB
     Indication: PLASMA CELL MYELOMA
     Dosage: ON A 21-DAY CYCLE, UP TO A TOTAL OF 17 CYCLES.?ON SAME DAY, FROM 11:12 AM TO 3:50 PM, HE RECEIVED MO
     Route: 042
     Dates: start: 20200728
  34. APIXABAN [Concomitant]
     Active Substance: APIXABAN
     Route: 048
     Dates: start: 20200814, end: 20200817
  35. ZOMETA [Concomitant]
     Active Substance: ZOLEDRONIC ACID
     Route: 042
     Dates: start: 201511
  36. RASBURICASE [Concomitant]
     Active Substance: RASBURICASE
     Route: 042
     Dates: start: 20200729, end: 20200729
  37. NORMAL SALINE [Concomitant]
     Active Substance: SODIUM CHLORIDE
     Route: 042
     Dates: start: 20200729, end: 20200729
  38. NORMAL SALINE [Concomitant]
     Active Substance: SODIUM CHLORIDE
     Route: 042
     Dates: start: 20200808, end: 20200808
  39. LORAZEPAM. [Concomitant]
     Active Substance: LORAZEPAM
     Indication: VOMITING
     Route: 060
     Dates: start: 20200808
  40. MAGNESIUM ASPARTATE [Concomitant]
     Active Substance: MAGNESIUM ASPARTATE
     Route: 048
     Dates: start: 20200826, end: 20200826
  41. METOCLOPRAMIDE. [Concomitant]
     Active Substance: METOCLOPRAMIDE
     Indication: VOMITING
     Route: 042
     Dates: start: 20200808, end: 20200816
  42. MIDAZOLAM. [Concomitant]
     Active Substance: MIDAZOLAM
     Route: 042
     Dates: start: 20200818, end: 20200818
  43. ONDANSETRON [Concomitant]
     Active Substance: ONDANSETRON
     Indication: NAUSEA
     Route: 048
     Dates: start: 20200816, end: 20200821
  44. HYDROMORPHONE [Concomitant]
     Active Substance: HYDROMORPHONE
     Indication: PAIN
     Route: 058
     Dates: start: 20200829, end: 20200830
  45. POTASSIUM CHLORIDE. [Concomitant]
     Active Substance: POTASSIUM CHLORIDE
     Route: 042
     Dates: start: 20200825, end: 20200825
  46. CRYOPRECIPITATE [Concomitant]
     Active Substance: CRYOPRECIPITATED ANTIHEMOPHILIC FACTOR (HUMAN)
     Indication: PLATELET COUNT DECREASED
     Dates: start: 20200818, end: 20200818
  47. GLUCOSE [Concomitant]
     Active Substance: DEXTROSE
     Dosage: 1000 ML (MM, CM3)
     Route: 042
     Dates: start: 20200813, end: 20200813
  48. VALACYCLOVIR [Concomitant]
     Active Substance: VALACYCLOVIR HYDROCHLORIDE
     Route: 048
     Dates: start: 201511
  49. CELLUFRESH [Concomitant]
     Indication: PHOTOPHOBIA
     Dates: end: 20200727
  50. DIPHENHYDRAMINE. [Concomitant]
     Active Substance: DIPHENHYDRAMINE
     Indication: PHOTOPHOBIA
     Route: 050
     Dates: start: 20200729, end: 20200729
  51. NORMAL SALINE [Concomitant]
     Active Substance: SODIUM CHLORIDE
     Route: 042
     Dates: start: 20200727, end: 20200727
  52. NORMAL SALINE [Concomitant]
     Active Substance: SODIUM CHLORIDE
     Route: 042
     Dates: start: 20200807, end: 20200807
  53. NORMAL SALINE [Concomitant]
     Active Substance: SODIUM CHLORIDE
     Route: 042
     Dates: start: 20200809, end: 20200809
  54. NORMAL SALINE [Concomitant]
     Active Substance: SODIUM CHLORIDE
     Route: 042
     Dates: start: 20200814, end: 20200814
  55. NORMAL SALINE [Concomitant]
     Active Substance: SODIUM CHLORIDE
     Route: 042
     Dates: start: 20200817, end: 20200817
  56. MAGNESIUM SULPHATE [Concomitant]
     Active Substance: MAGNESIUM SULFATE
     Indication: BLOOD PHOSPHORUS DECREASED
     Dosage: OTIC
     Route: 042
     Dates: start: 20200728, end: 20200728
  57. METOCLOPRAMIDE. [Concomitant]
     Active Substance: METOCLOPRAMIDE
     Indication: NAUSEA
  58. PANTOPRAZOLE [Concomitant]
     Active Substance: PANTOPRAZOLE
     Indication: GASTROINTESTINAL DISORDER PROPHYLAXIS
     Route: 048
     Dates: start: 20200729
  59. AZITHROMYCIN ANHYDROUS. [Concomitant]
     Active Substance: AZITHROMYCIN ANHYDROUS
     Route: 048
     Dates: start: 20200823, end: 20200824
  60. VANCOMYCIN [Concomitant]
     Active Substance: VANCOMYCIN
     Route: 042
     Dates: start: 20200822, end: 20200822
  61. HALOPERIDOL. [Concomitant]
     Active Substance: HALOPERIDOL
     Indication: VOMITING
  62. ALBUMINEX [Concomitant]
     Active Substance: ALBUMIN HUMAN-KJDA
     Indication: BLOOD ALBUMIN DECREASED
     Route: 042
     Dates: start: 20200823, end: 20200823
  63. PACKED RED CELLS [Concomitant]
     Active Substance: HUMAN RED BLOOD CELL
     Indication: ANAEMIA
     Dosage: 1 U
     Route: 042
     Dates: start: 20200729, end: 20200729
  64. ETOPOSIDE. [Concomitant]
     Active Substance: ETOPOSIDE
     Indication: NEOPLASM MALIGNANT
  65. NORMAL SALINE [Concomitant]
     Active Substance: SODIUM CHLORIDE
     Route: 042
     Dates: start: 20200728, end: 20200728
  66. NORMAL SALINE [Concomitant]
     Active Substance: SODIUM CHLORIDE
     Route: 042
     Dates: start: 20200811, end: 20200811
  67. MAGNESIUM SULPHATE [Concomitant]
     Active Substance: MAGNESIUM SULFATE
     Route: 042
     Dates: start: 20200816, end: 20200816
  68. HARTMANNS [Concomitant]
     Active Substance: CALCIUM CHLORIDE\POTASSIUM CHLORIDE\SODIUM LACTATE
     Route: 042
     Dates: start: 20200817, end: 20200817
  69. TOCILIZUMAB. [Suspect]
     Active Substance: TOCILIZUMAB
     Indication: CYTOKINE RELEASE SYNDROME
     Route: 042
     Dates: start: 20200729
  70. NORMAL SALINE [Concomitant]
     Active Substance: SODIUM CHLORIDE
     Route: 042
     Dates: start: 20200821, end: 20200821
  71. NORMAL SALINE [Concomitant]
     Active Substance: SODIUM CHLORIDE
     Route: 042
     Dates: start: 20200821, end: 20200821
  72. MAGNESIUM SULPHATE [Concomitant]
     Active Substance: MAGNESIUM SULFATE
     Route: 042
     Dates: start: 20200810, end: 20200810
  73. ALLOPURINOL. [Concomitant]
     Active Substance: ALLOPURINOL
     Route: 048
     Dates: start: 20200815
  74. CYCLIZINE [Concomitant]
     Active Substance: CYCLIZINE
     Indication: NAUSEA
     Route: 042
     Dates: start: 20200807
  75. CYCLIZINE [Concomitant]
     Active Substance: CYCLIZINE
     Indication: VOMITING
  76. PALONOSETRON. [Concomitant]
     Active Substance: PALONOSETRON HYDROCHLORIDE
     Indication: NAUSEA
     Route: 042
     Dates: start: 20200807, end: 20200807
  77. PALONOSETRON. [Concomitant]
     Active Substance: PALONOSETRON HYDROCHLORIDE
     Indication: VOMITING
  78. METHYLPREDNISOLONE. [Concomitant]
     Active Substance: METHYLPREDNISOLONE
     Indication: CYTOKINE RELEASE SYNDROME
     Route: 042
     Dates: start: 20200729, end: 20200730
  79. POTASSIUM CHLORIDE. [Concomitant]
     Active Substance: POTASSIUM CHLORIDE
     Route: 048
     Dates: start: 20200823, end: 20200823
  80. POTASSIUM CHLORIDE. [Concomitant]
     Active Substance: POTASSIUM CHLORIDE
     Route: 042
     Dates: start: 20200818, end: 20200818
  81. DIPHENHYDRAMINE. [Concomitant]
     Active Substance: DIPHENHYDRAMINE
     Route: 048
     Dates: start: 20200811, end: 20200811
  82. PARACETAMOL [Concomitant]
     Active Substance: ACETAMINOPHEN
     Indication: PHOTOPHOBIA
     Dosage: OTIC
     Route: 050
     Dates: start: 20200729, end: 20200729
  83. DEXAMETHASONE. [Concomitant]
     Active Substance: DEXAMETHASONE
     Indication: HYPERCALCAEMIA
     Route: 042
     Dates: start: 20200808, end: 20200811
  84. DEXAMETHASONE. [Concomitant]
     Active Substance: DEXAMETHASONE
     Indication: NEOPLASM MALIGNANT
     Route: 042
     Dates: start: 20200807, end: 20200811
  85. RASBURICASE [Concomitant]
     Active Substance: RASBURICASE
     Route: 042
     Dates: start: 20200811, end: 20200811
  86. NORMAL SALINE [Concomitant]
     Active Substance: SODIUM CHLORIDE
     Route: 042
     Dates: start: 20200727, end: 20200727
  87. NORMAL SALINE [Concomitant]
     Active Substance: SODIUM CHLORIDE
     Route: 042
     Dates: start: 20200804, end: 20200804
  88. NORMAL SALINE [Concomitant]
     Active Substance: SODIUM CHLORIDE
     Route: 042
     Dates: start: 20200813, end: 20200813
  89. NORMAL SALINE [Concomitant]
     Active Substance: SODIUM CHLORIDE
     Route: 042
     Dates: start: 20200816, end: 20200816
  90. MAGNESIUM SULPHATE [Concomitant]
     Active Substance: MAGNESIUM SULFATE
     Dosage: 10 OTHER
     Route: 042
     Dates: start: 20200809, end: 20200823
  91. MAGNESIUM SULPHATE [Concomitant]
     Active Substance: MAGNESIUM SULFATE
     Route: 042
     Dates: start: 20200823, end: 20200823
  92. MAGNESIUM SULPHATE [Concomitant]
     Active Substance: MAGNESIUM SULFATE
     Route: 042
     Dates: start: 20200818, end: 20200818
  93. FENTANYL. [Concomitant]
     Active Substance: FENTANYL
     Route: 042
     Dates: start: 20200818, end: 20200818
  94. FRUSEMIDE [Concomitant]
     Active Substance: FUROSEMIDE
     Indication: OEDEMA PERIPHERAL
     Route: 048
     Dates: start: 20200730, end: 20200730
  95. MAGNESIUM ASPARTATE [Concomitant]
     Active Substance: MAGNESIUM ASPARTATE
     Route: 042
     Dates: start: 20200809, end: 20200823
  96. PHYTOMENADIONE [Concomitant]
     Active Substance: PHYTONADIONE
     Route: 042
     Dates: start: 20200729, end: 20200729
  97. CINCHOCAINE HYDROCHLORIDE [Concomitant]
     Active Substance: DIBUCAINE HYDROCHLORIDE
     Indication: HAEMORRHOIDS
     Route: 061
     Dates: start: 20200802
  98. HYDROCORTISONE. [Concomitant]
     Active Substance: HYDROCORTISONE
     Route: 042
     Dates: start: 20200823, end: 20200823
  99. POTASSIUM CHLORIDE. [Concomitant]
     Active Substance: POTASSIUM CHLORIDE
     Route: 042
     Dates: start: 20200824, end: 20200824
  100. BACTRIM [Concomitant]
     Active Substance: SULFAMETHOXAZOLE\TRIMETHOPRIM
     Dosage: BACTRIM 800/160
     Route: 048
     Dates: start: 201511
  101. APIXABAN [Concomitant]
     Active Substance: APIXABAN
     Indication: DEEP VEIN THROMBOSIS
     Route: 048
     Dates: start: 20180919, end: 20200727
  102. ZOMETA [Concomitant]
     Active Substance: ZOLEDRONIC ACID
     Route: 042
     Dates: start: 20200727, end: 20200727
  103. NORMAL SALINE [Concomitant]
     Active Substance: SODIUM CHLORIDE
     Route: 042
     Dates: start: 20200810, end: 20200810
  104. NORMAL SALINE [Concomitant]
     Active Substance: SODIUM CHLORIDE
     Route: 042
     Dates: start: 20200811, end: 20200811
  105. MAGNESIUM SULPHATE [Concomitant]
     Active Substance: MAGNESIUM SULFATE
     Route: 042
     Dates: start: 20200809, end: 20200809
  106. ENOXAPARIN [Concomitant]
     Active Substance: ENOXAPARIN
     Indication: DEEP VEIN THROMBOSIS
     Route: 058
     Dates: start: 20200727
  107. CEFTRIAXONE. [Concomitant]
     Active Substance: CEFTRIAXONE
     Route: 042
     Dates: start: 20200729, end: 20200729
  108. GLUCOSE [Concomitant]
     Active Substance: DEXTROSE
     Dosage: 1000 ML (MM, CM3)
     Route: 042
     Dates: start: 20200812, end: 20200812
  109. CISPLATIN. [Concomitant]
     Active Substance: CISPLATIN
     Indication: NEOPLASM MALIGNANT

REACTIONS (3)
  - Chronic kidney disease [Recovered/Resolved]
  - Atrial fibrillation [Not Recovered/Not Resolved]
  - Malignant neoplasm progression [Fatal]

NARRATIVE: CASE EVENT DATE: 20200807
